FAERS Safety Report 5178390-4 (Version None)
Quarter: 2006Q4

REPORT INFORMATION
  Report Type: 
  Country: None (occurrence: None)
  Receive Date: 20061218
  Receipt Date: 20060822
  Transmission Date: 20070319
  Serious: No
  Sender: FDA-Public Use
  Company Number: US-AMGEN-KDL190972

PATIENT
  Sex: Female

DRUGS (3)
  1. ENBREL [Suspect]
     Indication: RHEUMATOID ARTHRITIS
     Route: 058
     Dates: start: 20060327
  2. METHOTREXATE [Concomitant]
     Route: 058
     Dates: start: 19920101
  3. PLAQUENIL [Concomitant]
     Dates: start: 19900901

REACTIONS (2)
  - ARTHRALGIA [None]
  - WHITE BLOOD CELL COUNT INCREASED [None]
